FAERS Safety Report 7664136 (Version 4)
Quarter: 2012Q4

REPORT INFORMATION
  Report Type: 
  Country: FR (occurrence: FR)
  Receive Date: 20101111
  Receipt Date: 20121030
  Transmission Date: 20130627
  Serious: Yes (Other)
  Sender: FDA-Public Use
  Company Number: FR-BRISTOL-MYERS SQUIBB COMPANY-15371834

PATIENT
  Age: 51 Year
  Sex: Male

DRUGS (3)
  1. REYATAZ CAPS 300 MG [Suspect]
     Indication: HIV INFECTION
     Dosage: Interrupted on 08Nov2005;restarted
     Route: 048
     Dates: start: 20051004
  2. COMBIVIR [Suspect]
     Indication: HIV INFECTION
     Dosage: Interrupted on 08Nov2005;resumed
     Route: 048
     Dates: start: 200110
  3. NORVIR [Suspect]
     Indication: HIV INFECTION
     Dosage: Interrupted on 08Nov2005;resumed

REACTIONS (3)
  - Hepatocellular injury [Recovered/Resolved with Sequelae]
  - Cholestasis [Recovered/Resolved with Sequelae]
  - Cholelithiasis [Recovered/Resolved with Sequelae]
